FAERS Safety Report 11269698 (Version 1)
Quarter: 2015Q3

REPORT INFORMATION
  Report Type: Spontaneous
  Country: US (occurrence: None)
  Receive Date: 20150713
  Receipt Date: 20150713
  Transmission Date: 20151125
  Serious: No
  Sender: FDA-Public Use
  Company Number: None

PATIENT
  Age: 44 Year
  Sex: Female
  Weight: 74.84 kg

DRUGS (7)
  1. OVER THE COUNTER ALLERGY PILL [Concomitant]
  2. TECFIDERA [Suspect]
     Active Substance: DIMETHYL FUMARATE
     Indication: MULTIPLE SCLEROSIS
     Dosage: 1 PILL TWICE DAILY TAKEN BY MOUTH
     Route: 048
  3. MULTI VITAMIN [Concomitant]
     Active Substance: VITAMINS
  4. CALCIUM PLUS D [Concomitant]
     Active Substance: CALCIUM\VITAMIN D
  5. BLACK COHOSH [Concomitant]
     Active Substance: BLACK COHOSH
  6. FISH OIL [Concomitant]
     Active Substance: FISH OIL
  7. VITAMIN D [Concomitant]
     Active Substance: CHOLECALCIFEROL

REACTIONS (1)
  - Alopecia [None]

NARRATIVE: CASE EVENT DATE: 20150709
